FAERS Safety Report 19588716 (Version 3)
Quarter: 2022Q1

REPORT INFORMATION
  Report Type: Report from Study
  Country: CO (occurrence: CO)
  Receive Date: 20210721
  Receipt Date: 20220307
  Transmission Date: 20220423
  Serious: Yes (Hospitalization, Other)
  Sender: FDA-Public Use
  Company Number: CO-002147023-PHHY2019CO070296

PATIENT

DRUGS (3)
  1. RUXOLITINIB [Suspect]
     Active Substance: RUXOLITINIB
     Indication: Polycythaemia vera
     Dosage: 20 MG, QD
     Route: 048
  2. RUXOLITINIB [Suspect]
     Active Substance: RUXOLITINIB
     Dosage: 30 MG, QD
     Route: 048
  3. RUXOLITINIB [Suspect]
     Active Substance: RUXOLITINIB
     Dosage: UNK, Q12H
     Route: 048

REACTIONS (7)
  - Bone cancer [Recovering/Resolving]
  - COVID-19 [Unknown]
  - Movement disorder [Unknown]
  - Decreased immune responsiveness [Unknown]
  - Inappropriate schedule of product administration [Unknown]
  - Second primary malignancy [Recovering/Resolving]
  - Skin cancer [Unknown]
